FAERS Safety Report 10220659 (Version 1)
Quarter: 2014Q2

REPORT INFORMATION
  Report Type: Spontaneous
  Country: MX (occurrence: None)
  Receive Date: 20140604
  Receipt Date: 20140604
  Transmission Date: 20141212
  Serious: Yes (Hospitalization)
  Sender: FDA-Public Use
  Company Number: SYM-2014-21397

PATIENT
  Age: 3 Year
  Sex: Male

DRUGS (3)
  1. FLAGYL (METRONIDAZOLE) (ORAL SUSPENSION) (METRONIDAZOLE) [Suspect]
     Indication: PROPHYLAXIS
     Route: 048
     Dates: start: 20140505, end: 20140510
  2. ENTEROGERMINA (BACILLUS CLAUSII) (ORAL SUSPENSION) (BACILLUS CLAUSII) [Suspect]
     Indication: PROBIOTIC THERAPY
     Route: 048
     Dates: start: 20140510, end: 20140510
  3. ALBENDAZOLE (ALENDAZOLE) [Concomitant]

REACTIONS (7)
  - Gastritis [None]
  - Dehydration [None]
  - Drug intolerance [None]
  - Abdominal pain upper [None]
  - Vomiting [None]
  - Pyrexia [None]
  - Incorrect dose administered [None]
